FAERS Safety Report 17159201 (Version 1)
Quarter: 2019Q4

REPORT INFORMATION
  Report Type: Spontaneous
  Country: US (occurrence: US)
  Receive Date: 20191214
  Receipt Date: 20191214
  Transmission Date: 20200122
  Serious: Yes (Hospitalization)
  Sender: FDA-Public Use
  Company Number: None

PATIENT
  Age: 90 Year
  Sex: Female
  Weight: 54 kg

DRUGS (6)
  1. DILTIAZEM 120MG DAILY [Concomitant]
  2. RIVAROXABAN [Suspect]
     Active Substance: RIVAROXABAN
     Indication: ATRIAL FIBRILLATION
     Route: 048
     Dates: start: 20151225
  3. DIAZEPAM 2MG NIGHTLY PRN [Concomitant]
  4. MELATONIN 5MG NIGHTLY [Concomitant]
  5. CITALOPRAM 10MG DAILY [Concomitant]
  6. PORK THYROID 45MG DAILY [Concomitant]

REACTIONS (3)
  - Gastrointestinal haemorrhage [None]
  - Pollakiuria [None]
  - Blood loss anaemia [None]

NARRATIVE: CASE EVENT DATE: 20160706
